FAERS Safety Report 24248573 (Version 3)
Quarter: 2024Q4

REPORT INFORMATION
  Report Type: Spontaneous
  Country: US (occurrence: US)
  Receive Date: 20240826
  Receipt Date: 20241009
  Transmission Date: 20250115
  Serious: Yes (Other)
  Sender: BAYER
  Company Number: US-BAYER-2024A120192

PATIENT
  Age: 66 Year
  Sex: Female
  Weight: 50 kg

DRUGS (9)
  1. BETASERON [Suspect]
     Active Substance: INTERFERON BETA-1B
     Indication: Multiple sclerosis
     Dosage: UNK
     Route: 058
     Dates: start: 199406, end: 20240317
  2. VITAMINS [Concomitant]
     Active Substance: VITAMINS
     Dosage: UNK
  3. ATORVASTATIN [Concomitant]
     Active Substance: ATORVASTATIN
     Dosage: 20 MG
     Dates: start: 20240625
  4. CALCIUM [Concomitant]
     Active Substance: CALCIUM
     Dosage: 1 DF, QD
     Route: 048
     Dates: start: 20201203
  5. ESTRADIOL [Concomitant]
     Active Substance: ESTRADIOL
     Dosage: UNK
     Route: 048
     Dates: start: 20240625
  6. MELOXICAM [Concomitant]
     Active Substance: MELOXICAM
     Dosage: UNK
     Route: 048
     Dates: start: 20240625
  7. METRONIDAZOLE [Concomitant]
     Active Substance: METRONIDAZOLE
  8. TRIAMCINOLONE [Concomitant]
     Active Substance: TRIAMCINOLONE
  9. VITAMIN D3 [Concomitant]
     Active Substance: CHOLECALCIFEROL

REACTIONS (19)
  - Injection site scar [None]
  - Lyme disease [None]
  - Peptic ulcer [None]
  - Calciphylaxis [None]
  - Multiple sclerosis [None]
  - Injection site mass [None]
  - Injection site pain [None]
  - Injection site induration [None]
  - Injection site discomfort [None]
  - Intra-abdominal calcification [None]
  - Essential hypertension [None]
  - Gastrooesophageal reflux disease [None]
  - Dysphagia [None]
  - Odynophagia [None]
  - Blood glucose abnormal [None]
  - Perioral dermatitis [None]
  - Hyperkeratosis [None]
  - Hyperlipidaemia [None]
  - Viral infection [None]

NARRATIVE: CASE EVENT DATE: 20170423
